FAERS Safety Report 22745871 (Version 2)
Quarter: 2025Q1

REPORT INFORMATION
  Report Type: Report from Study
  Country: GB (occurrence: GB)
  Receive Date: 20230725
  Receipt Date: 20250319
  Transmission Date: 20250409
  Serious: Yes (Other)
  Sender: SAMSUNG BIOEPIS
  Company Number: GB-SAMSUNG BIOEPIS-SB-2023-19520

PATIENT
  Age: 50 Year
  Sex: Male

DRUGS (1)
  1. IMRALDI [Suspect]
     Active Substance: ADALIMUMAB
     Indication: Ankylosing spondylitis
     Dosage: 40 MG/0.8 ML;
     Route: 058

REACTIONS (5)
  - Immunosuppression [Unknown]
  - COVID-19 [Unknown]
  - Injection site pain [Unknown]
  - Influenza [Unknown]
  - Pain [Unknown]
